FAERS Safety Report 4529633-9 (Version None)
Quarter: 2004Q4

REPORT INFORMATION
  Report Type: 
  Country: None (occurrence: None)
  Receive Date: 20041216
  Receipt Date: 20041214
  Transmission Date: 20050328
  Serious: Yes (Life-Threatening, Hospitalization, Disabling)
  Sender: FDA-Public Use
  Company Number: NO-MERCK-0412NOR00026

PATIENT
  Age: 57 Year
  Sex: Male

DRUGS (5)
  1. VIOXX [Suspect]
     Indication: ARTHRALGIA
     Route: 048
     Dates: start: 20040112, end: 20040116
  2. BETAMETHASONE ACETATE [Concomitant]
     Indication: ARTHRALGIA
     Route: 051
     Dates: start: 20040112, end: 20040112
  3. BETAMETHASONE ACETATE [Concomitant]
     Route: 051
     Dates: start: 20040116, end: 20040116
  4. LIDOCAINE [Concomitant]
     Indication: ARTHRALGIA
     Route: 051
     Dates: start: 20040112, end: 20040112
  5. LIDOCAINE [Concomitant]
     Route: 051
     Dates: start: 20040116, end: 20040116

REACTIONS (4)
  - ANOXIC ENCEPHALOPATHY [None]
  - BRAIN DAMAGE [None]
  - CARDIAC ARREST [None]
  - RESPIRATORY ARREST [None]
